FAERS Safety Report 25791519 (Version 1)
Quarter: 2025Q3

REPORT INFORMATION
  Report Type: Spontaneous
  Country: US (occurrence: None)
  Receive Date: 20250911
  Receipt Date: 20250911
  Transmission Date: 20251020
  Serious: Yes (Hospitalization)
  Sender: FDA-CTU
  Company Number: None

PATIENT
  Sex: Male

DRUGS (10)
  1. VYNDAMAX [Suspect]
     Active Substance: TAFAMIDIS
     Indication: Amyloidosis
     Route: 048
     Dates: start: 20250224
  2. ASPIRIN LOW TAB 81MG [Concomitant]
  3. ATORVASTATIN TAB 80MG [Concomitant]
  4. FEBUXOSTAT TAB 40MG [Concomitant]
  5. GABAPENTIN [Concomitant]
     Active Substance: GABAPENTIN
  6. HYDRALAZINE TAB 50MG [Concomitant]
  7. NIFEDIPINE  TAB 60MG [Concomitant]
  8. PREDNISONE [Concomitant]
     Active Substance: PREDNISONE
  9. VALSARTAN  TAB 320MG [Concomitant]
  10. VITAMIN C TAB 500MG [Concomitant]

REACTIONS (1)
  - Dehydration [None]
